FAERS Safety Report 11621191 (Version 1)
Quarter: 2015Q4

REPORT INFORMATION
  Report Type: Spontaneous
  Country: US (occurrence: US)
  Receive Date: 20151012
  Receipt Date: 20151012
  Transmission Date: 20160304
  Serious: No
  Sender: FDA-Public Use
  Company Number: US-GLAXOSMITHKLINE-US2015GSK138911

PATIENT
  Sex: Female

DRUGS (1)
  1. TANZEUM [Suspect]
     Active Substance: ALBIGLUTIDE
     Indication: METABOLIC SYNDROME
     Dosage: 50 MG, WE
     Route: 042
     Dates: start: 201507

REACTIONS (2)
  - Device use error [Unknown]
  - Off label use [Unknown]
